FAERS Safety Report 8045851-X (Version None)
Quarter: 2012Q1

REPORT INFORMATION
  Report Type: 
  Country: None (occurrence: None)
  Receive Date: 20120113
  Receipt Date: 20120106
  Transmission Date: 20120608
  Serious: Yes (Other)
  Sender: FDA-Public Use
  Company Number: CHPA2012US000646

PATIENT
  Age: 80 Year
  Sex: Female

DRUGS (3)
  1. CARDIZEM [Concomitant]
     Indication: HYPERTENSION
     Dosage: UNK DF, UNK
     Route: 048
  2. DIGOXIN [Concomitant]
     Indication: HYPERTENSION
     Dosage: UNK DF, UNK
     Route: 048
  3. EXCEDRIN (MIGRAINE) [Suspect]
     Indication: BACK PAIN
     Dosage: 1 DF, QD
     Route: 048
     Dates: start: 20111206

REACTIONS (3)
  - EXPIRED DRUG ADMINISTERED [None]
  - ATRIAL FIBRILLATION [None]
  - UNDERDOSE [None]
